FAERS Safety Report 5215338-8 (Version None)
Quarter: 2007Q1

REPORT INFORMATION
  Report Type: 
  Country: None (occurrence: None)
  Receive Date: 20061122
  Receipt Date: 20060621
  Transmission Date: 20070707
  Serious: Yes (Other)
  Sender: FDA-Public Use
  Company Number: 2006079208

PATIENT
  Age: 69 Year
  Sex: Male
  Weight: 97.5234 kg

DRUGS (11)
  1. LIPITOR [Suspect]
     Indication: BLOOD CHOLESTEROL
     Dosage: 20 MG (10 MG, 2 IN 1 D)
     Dates: start: 20000101, end: 20060619
  2. POTASSIUM CHLORIDE [Concomitant]
  3. METFORMIN (METFORMIN) [Concomitant]
  4. DIOVAN HCT [Concomitant]
  5. NORVASC [Concomitant]
  6. SINGULAIR [Concomitant]
  7. PROSCAR [Concomitant]
  8. PLAVIX [Concomitant]
  9. DILTIAZEM [Concomitant]
  10. BETA-LACTAM ANTIBACTERIALS, PENICILLINS (BETA-LACTAM ANTIBACTERIALS, P [Concomitant]
  11. ALBUTEROL [Concomitant]

REACTIONS (16)
  - ABDOMINAL PAIN UPPER [None]
  - ABNORMAL DREAMS [None]
  - ANGINA PECTORIS [None]
  - ASTHMA [None]
  - BODY TEMPERATURE INCREASED [None]
  - BRONCHITIS [None]
  - DEPRESSION [None]
  - DIZZINESS [None]
  - FACE OEDEMA [None]
  - FATIGUE [None]
  - INSOMNIA [None]
  - LACRIMATION INCREASED [None]
  - MUSCLE SPASMS [None]
  - NEUROPATHY PERIPHERAL [None]
  - PALPITATIONS [None]
  - TINNITUS [None]
